FAERS Safety Report 8173150 (Version 3)
Quarter: 2014Q1

REPORT INFORMATION
  Report Type: Spontaneous
  Country: US (occurrence: US)
  Receive Date: 20111007
  Receipt Date: 20140130
  Transmission Date: 20141002
  Serious: Yes (Life-Threatening, Other)
  Sender: FDA-Public Use
  Company Number: US-BAYER-2011-092386

PATIENT
  Age: 22 Year
  Sex: Female

DRUGS (10)
  1. YAZ [Suspect]
  2. YASMIN [Suspect]
  3. OCELLA [Suspect]
  4. GIANVI [Suspect]
     Dosage: UNK
  5. RESTORIL [Concomitant]
     Indication: INSOMNIA
     Dosage: 30 MG, UNK
  6. FLEXERIL [Concomitant]
     Dosage: 10 MG, UNK
  7. HYDROCODONE W/APAP [Concomitant]
     Dosage: 500 MG, UNK
  8. PRILOSEC [Concomitant]
  9. PHENERGAN [Concomitant]
  10. IMODIUM [Concomitant]
     Indication: GASTROENTERITIS

REACTIONS (7)
  - Cholecystectomy [None]
  - Biliary dyskinesia [None]
  - Injury [None]
  - Pain [None]
  - Anxiety [None]
  - Anhedonia [None]
  - Fear of disease [None]
